FAERS Safety Report 13085705 (Version 1)
Quarter: 2017Q1

REPORT INFORMATION
  Report Type: Spontaneous
  Country: US (occurrence: US)
  Receive Date: 20170104
  Receipt Date: 20170104
  Transmission Date: 20170428
  Serious: Yes (Life-Threatening, Hospitalization)
  Sender: FDA-Public Use
  Company Number: PHEH2016US034173

PATIENT
  Age: 52 Year
  Sex: Female
  Weight: 106 kg

DRUGS (1)
  1. COSENTYX [Suspect]
     Active Substance: SECUKINUMAB
     Indication: PSORIATIC ARTHROPATHY
     Dosage: 150 MG, QW
     Route: 058
     Dates: start: 20161206

REACTIONS (2)
  - Peripheral swelling [Unknown]
  - Thrombosis [Recovering/Resolving]

NARRATIVE: CASE EVENT DATE: 20161209
